FAERS Safety Report 10789698 (Version 1)
Quarter: 2015Q1

REPORT INFORMATION
  Report Type: Spontaneous
  Country: TR (occurrence: TR)
  Receive Date: 20150212
  Receipt Date: 20150212
  Transmission Date: 20150721
  Serious: Yes (Other)
  Sender: FDA-Public Use
  Company Number: ALCN2015TR001069

PATIENT
  Age: 26 Year
  Sex: Male
  Weight: 82 kg

DRUGS (1)
  1. PATANOL [Suspect]
     Active Substance: OLOPATADINE HYDROCHLORIDE
     Indication: CONJUNCTIVITIS ALLERGIC
     Dosage: 1 GTT, TID
     Route: 047
     Dates: start: 20150118, end: 20150119

REACTIONS (7)
  - Eye irritation [Recovering/Resolving]
  - Eye pain [Recovering/Resolving]
  - Blindness transient [Recovering/Resolving]
  - Eye allergy [Recovering/Resolving]
  - Photosensitivity reaction [Recovering/Resolving]
  - Visual impairment [Recovering/Resolving]
  - Hypersensitivity [Recovering/Resolving]

NARRATIVE: CASE EVENT DATE: 20150119
